FAERS Safety Report 7162906-2 (Version None)
Quarter: 2010Q4

REPORT INFORMATION
  Report Type: 
  Country: None (occurrence: None)
  Receive Date: 20101215
  Receipt Date: 20100122
  Transmission Date: 20110411
  Serious: Yes (Hospitalization)
  Sender: FDA-Public Use
  Company Number: FR-PFIZER INC-2009254147

PATIENT
  Age: 69 Year
  Sex: Male

DRUGS (8)
  1. LYRICA [Suspect]
     Dosage: 2 DF, 1X/DAY
     Route: 048
     Dates: start: 20090707, end: 20090713
  2. BACTRIM [Suspect]
     Indication: PROPHYLAXIS
     Dosage: 1 DF, ALTERNATE DAY
     Route: 048
     Dates: start: 20090708, end: 20090710
  3. MABCAMPATH [Concomitant]
     Indication: DIFFUSE LARGE B-CELL LYMPHOMA
     Dosage: 3 MG, 1X/DAY
     Route: 058
     Dates: start: 20090708, end: 20090708
  4. MABCAMPATH [Concomitant]
     Dosage: 10 MG, 1X/DAY
     Route: 058
     Dates: start: 20090709, end: 20090709
  5. MABCAMPATH [Concomitant]
     Dosage: 30 MG, 1X/DAY
     Route: 058
     Dates: start: 20090710, end: 20090710
  6. MABCAMPATH [Concomitant]
     Dosage: UNK
     Dates: start: 20090729, end: 20090731
  7. PARACETAMOL [Concomitant]
     Indication: PREMEDICATION
     Dosage: UNK
  8. VALACYCLOVIR HYDROCHLORIDE [Concomitant]
     Dosage: 2 DF, 1X/DAY
     Dates: start: 20090708

REACTIONS (1)
  - TOXIC SKIN ERUPTION [None]
